FAERS Safety Report 22286010 (Version 1)
Quarter: 2023Q2

REPORT INFORMATION
  Report Type: Spontaneous
  Country: US (occurrence: US)
  Receive Date: 20230505
  Receipt Date: 20230505
  Transmission Date: 20230722
  Serious: No
  Sender: FDA-Public Use
  Company Number: US-GLAXOSMITHKLINE-US2023AMR063373

PATIENT
  Sex: Female
  Weight: 58.957 kg

DRUGS (3)
  1. ZEJULA [Suspect]
     Active Substance: NIRAPARIB
     Indication: Ovarian cancer
     Dosage: UNK
  2. ZEJULA [Suspect]
     Active Substance: NIRAPARIB
     Dosage: 100 MG, QD
     Route: 048
  3. ETODOLAC [Concomitant]
     Active Substance: ETODOLAC
     Indication: Product used for unknown indication
     Dosage: UNK

REACTIONS (6)
  - Carbohydrate antigen 125 increased [Recovering/Resolving]
  - Feeling abnormal [Recovering/Resolving]
  - Depression [Recovering/Resolving]
  - Constipation [Recovering/Resolving]
  - Anxiety [Recovering/Resolving]
  - Product dose omission issue [Recovering/Resolving]
